FAERS Safety Report 19965191 (Version 1)
Quarter: 2021Q4

REPORT INFORMATION
  Report Type: Spontaneous
  Country: US (occurrence: US)
  Receive Date: 20211018
  Receipt Date: 20211018
  Transmission Date: 20220303
  Serious: Yes (Death, Other)
  Sender: FDA-Public Use
  Company Number: US-HQ SPECIALTY-US-2021INT000181

PATIENT
  Age: 44 Year
  Sex: Female

DRUGS (5)
  1. CISPLATIN [Suspect]
     Active Substance: CISPLATIN
     Indication: Squamous cell carcinoma of the cervix
     Dosage: 40 MG/M2, WEEKLY (3 DOSES)
     Route: 065
  2. RADIATION THERAPY [Concomitant]
     Active Substance: RADIATION THERAPY
     Indication: Squamous cell carcinoma of the cervix
     Dosage: 45 GY IN 25 FRACTIONS WITH DOSE PAINTING OF INVOLVED NODES TO 56 GY
     Route: 065
  3. RADIATION THERAPY [Concomitant]
     Active Substance: RADIATION THERAPY
     Dosage: ADDITIONAL SEQUENTIAL BOOSTS
     Route: 065
  4. CARBOPLATIN [Concomitant]
     Active Substance: CARBOPLATIN
     Indication: Squamous cell carcinoma of the cervix
     Dosage: AUC2 (ONE DOSE)
     Route: 065
  5. RADIATION THERAPY [Concomitant]
     Active Substance: RADIATION THERAPY
     Indication: Squamous cell carcinoma of the cervix
     Dosage: UNK
     Route: 017

REACTIONS (7)
  - Cardiac arrest [Fatal]
  - Ventricular tachycardia [Fatal]
  - Hypovolaemic shock [Fatal]
  - Encephalopathy [Fatal]
  - Acute hepatic failure [Fatal]
  - Pulmonary embolism [None]
  - Deep vein thrombosis [None]
